FAERS Safety Report 20306041 (Version 1)
Quarter: 2022Q1

REPORT INFORMATION
  Report Type: Spontaneous
  Country: CA (occurrence: CA)
  Receive Date: 20220106
  Receipt Date: 20220106
  Transmission Date: 20220424
  Serious: Yes (Hospitalization)
  Sender: FDA-Public Use
  Company Number: None

PATIENT
  Sex: Female
  Weight: 6 kg

DRUGS (2)
  1. ESCITALOPRAM OXALATE [Interacting]
     Active Substance: ESCITALOPRAM OXALATE
     Indication: Maternal exposure timing unspecified
     Dosage: 10 MG, QD
     Route: 063
  2. BUPROPION [Interacting]
     Active Substance: BUPROPION
     Indication: Maternal exposure timing unspecified
     Dosage: 150 MG, QD
     Route: 063

REACTIONS (7)
  - Drug level increased [Recovered/Resolved]
  - Tonic convulsion [Recovered/Resolved]
  - Seizure like phenomena [Recovered/Resolved]
  - Drug interaction [Unknown]
  - Vomiting [Recovered/Resolved]
  - Sleep disorder [Recovered/Resolved]
  - Exposure via breast milk [Unknown]
